FAERS Safety Report 14154005 (Version 2)
Quarter: 2017Q4

REPORT INFORMATION
  Report Type: Report from Study
  Country: US (occurrence: US)
  Receive Date: 20171102
  Receipt Date: 20171117
  Transmission Date: 20180321
  Serious: Yes (Hospitalization)
  Sender: FDA-Public Use
  Company Number: US-UCBSA-2017042639

PATIENT
  Age: 16 Year
  Sex: Male
  Weight: 56.7 kg

DRUGS (4)
  1. ZONEGRAN [Concomitant]
     Active Substance: ZONISAMIDE
     Indication: EPILEPSY
     Dosage: 100 MG, 2X/DAY (BID)
     Route: 048
     Dates: start: 201308, end: 20170802
  2. ZONEGRAN [Concomitant]
     Active Substance: ZONISAMIDE
     Dosage: 100MG AM AND 200MG PM
     Route: 048
     Dates: start: 20170802
  3. BRIVARACETAM PEP [Suspect]
     Active Substance: BRIVARACETAM
     Indication: EPILEPSY
     Dosage: 9.5 ML, 2X/DAY (BID)
     Route: 048
     Dates: start: 20170222, end: 20170802
  4. BRIVARACETAM PEP [Suspect]
     Active Substance: BRIVARACETAM
     Dosage: 10 MG, 2X/DAY (BID)
     Route: 048
     Dates: start: 20170802

REACTIONS (2)
  - Seizure [Recovered/Resolved]
  - Viral infection [Recovered/Resolved]

NARRATIVE: CASE EVENT DATE: 2017
